FAERS Safety Report 8890205 (Version 1)
Quarter: 2012Q4

REPORT INFORMATION
  Report Type: 
  Country: US (occurrence: US)
  Receive Date: 20121107
  Receipt Date: 20121107
  Transmission Date: 20130627
  Serious: Yes (Hospitalization)
  Sender: FDA-Public Use
  Company Number: US-JNJFOC-20121016112

PATIENT
  Sex: Female
  Weight: 98.88 kg

DRUGS (8)
  1. SANDOZ FENTANYL TRANSDERMAL SYSTEM [Suspect]
     Indication: SPINAL FRACTURE
     Route: 062
     Dates: start: 201111, end: 201210
  2. SANDOZ FENTANYL TRANSDERMAL SYSTEM [Suspect]
     Indication: SPINAL FRACTURE
     Route: 062
     Dates: start: 201210
  3. HYDROCODONE [Suspect]
     Indication: PAIN
     Route: 048
     Dates: start: 201111, end: 201210
  4. OXYCODONE [Suspect]
     Indication: PAIN
     Route: 065
     Dates: start: 201210
  5. DEXILANT [Concomitant]
     Indication: GASTRIC DISORDER
     Route: 048
  6. COREG [Concomitant]
     Indication: CARDIAC DISORDER
     Route: 048
  7. UNKNOWN MEDICATION [Concomitant]
     Indication: CARDIAC DISORDER
     Route: 048
  8. INSULIN [Concomitant]
     Indication: DIABETES MELLITUS
     Dosage: 15-20 units

70/30
     Route: 058
     Dates: start: 1996

REACTIONS (8)
  - Renal failure [Not Recovered/Not Resolved]
  - Mental disorder [Recovered/Resolved]
  - Hypotension [Recovered/Resolved]
  - Dehydration [Recovered/Resolved]
  - Pain [Recovered/Resolved]
  - Vomiting [Recovering/Resolving]
  - Nausea [Recovering/Resolving]
  - Application site pruritus [Not Recovered/Not Resolved]
